FAERS Safety Report 8036335-3 (Version None)
Quarter: 2012Q1

REPORT INFORMATION
  Report Type: 
  Country: None (occurrence: None)
  Receive Date: 20120111
  Receipt Date: 20111116
  Transmission Date: 20120608
  Serious: No
  Sender: FDA-Public Use
  Company Number: US-GLAXOSMITHKLINE-A0953406A

PATIENT
  Age: 71 Year
  Sex: Male

DRUGS (3)
  1. JALYN [Suspect]
     Indication: MICTURITION DISORDER
     Dosage: .5VA PER DAY
     Route: 048
     Dates: start: 20111102, end: 20111105
  2. CRESTOR [Concomitant]
  3. ALLOPURINOL [Concomitant]

REACTIONS (9)
  - DIZZINESS [None]
  - ERECTILE DYSFUNCTION [None]
  - HEADACHE [None]
  - LIBIDO DECREASED [None]
  - RETROGRADE EJACULATION [None]
  - INSOMNIA [None]
  - ABDOMINAL PAIN UPPER [None]
  - ADVERSE DRUG REACTION [None]
  - ASTHENIA [None]
